FAERS Safety Report 5383445-5 (Version None)
Quarter: 2007Q3

REPORT INFORMATION
  Report Type: 
  Country: None (occurrence: None)
  Receive Date: 20070710
  Receipt Date: 20070705
  Transmission Date: 20080115
  Serious: Yes (Hospitalization)
  Sender: FDA-Public Use
  Company Number: DE-BOEHRINGER INGELHEIM PHARMACEUTICALS, INC.-2007-DE-04000DE

PATIENT
  Sex: Male

DRUGS (2)
  1. MICARDIS HCT [Suspect]
     Dosage: 80 MG TELMISARTAN + 12,5 MG HCT
  2. AMITRIPTLINE HCL [Suspect]

REACTIONS (3)
  - OVERDOSE [None]
  - SUICIDE ATTEMPT [None]
  - TACHYCARDIA [None]
